FAERS Safety Report 8887743 (Version 2)
Quarter: 2013Q2

REPORT INFORMATION
  Report Type: Spontaneous
  Country: BR (occurrence: BR)
  Receive Date: 20121106
  Receipt Date: 20130522
  Transmission Date: 20140414
  Serious: Yes (Other)
  Sender: FDA-Public Use
  Company Number: BR-AMGEN-BRASP2012028176

PATIENT
  Age: 52 Year
  Sex: Female
  Weight: 60 kg

DRUGS (13)
  1. ENBREL [Suspect]
     Indication: RHEUMATOID ARTHRITIS
     Dosage: 50 MG, ONCE WEEKLY
     Route: 058
     Dates: start: 20120207, end: 20130423
  2. ENBREL [Suspect]
     Dosage: 50 MG, 1X/WEEK
     Route: 058
     Dates: start: 201203
  3. FOLIC ACID [Concomitant]
     Dosage: UNK UNK, UNK
  4. CALCIUM [Concomitant]
     Indication: BONE DISORDER
     Dosage: 2 DF, UNK
     Dates: start: 2008
  5. METHOTREXATE [Concomitant]
     Indication: ARTHRITIS
     Dosage: 6 TABLETS OF 2.5 MG, 1X/WEEK
     Dates: start: 2010
  6. METHOTREXATE [Concomitant]
     Dosage: 1 CAPSULE OR TABLET (UNSPECIFIED DOSE) A DAY
  7. PREDNISONE [Concomitant]
     Indication: ARTHRITIS
     Dosage: 2 CAPSULES OR TABLETS  IN THE MORNING/NIGHT
  8. PREDNISONE [Concomitant]
     Dosage: 2 CAPSULES OR TABLETS (NOT CLEARLY SPECIFIED), IN THE MORNING/NIGHT (REPORTED AS THIS)
  9. ALPRAZOLAM [Concomitant]
     Indication: SLEEP DISORDER
     Dosage: UNK
  10. ALPRAZOLAM [Concomitant]
     Indication: DEPRESSION
     Dosage: 1 MG, UNK
  11. SIMVASTATIN [Concomitant]
     Indication: BLOOD CHOLESTEROL ABNORMAL
     Dosage: 20 MG, UNK
  12. OMEPRAZOL                          /00661201/ [Concomitant]
     Indication: ABDOMINAL DISCOMFORT
     Dosage: 40 MG, UNK
  13. SERTRALINE [Concomitant]
     Indication: DEPRESSION
     Dosage: 100 MG, UNK

REACTIONS (4)
  - Hypersensitivity [Unknown]
  - Cardiac arrest [Unknown]
  - Chest pain [Unknown]
  - Influenza [Not Recovered/Not Resolved]
